FAERS Safety Report 9994033 (Version 1)
Quarter: 2014Q1

REPORT INFORMATION
  Report Type: Spontaneous
  Country: US (occurrence: US)
  Receive Date: 20140310
  Receipt Date: 20140310
  Transmission Date: 20141002
  Serious: No
  Sender: FDA-Public Use
  Company Number: US-AMGEN-USASP2014005707

PATIENT
  Age: 54 Year
  Sex: Female

DRUGS (11)
  1. SENSIPAR [Suspect]
     Indication: HYPERPARATHYROIDISM SECONDARY
     Dosage: 120 MG, QD
     Route: 065
  2. FOSRENOL [Concomitant]
     Dosage: UNK
     Route: 065
  3. VITAMIN B12                        /00056201/ [Concomitant]
     Dosage: UNK
     Route: 065
  4. FOLIC ACID [Concomitant]
     Dosage: UNK
     Route: 065
  5. MIDODRINE [Concomitant]
     Dosage: UNK
     Route: 065
  6. GABAPENTIN [Concomitant]
     Dosage: UNK
     Route: 065
  7. EXAPRO [Concomitant]
     Dosage: UNK
     Route: 065
  8. XANAX [Concomitant]
  9. MINOCYCLINE                        /00232402/ [Concomitant]
     Dosage: UNK UNK, QD
     Route: 065
  10. REMICADE [Concomitant]
     Dosage: UNK
     Route: 065
  11. PREVACID FDT [Concomitant]
     Dosage: UNK
     Route: 065

REACTIONS (2)
  - Malabsorption [Unknown]
  - Blood parathyroid hormone abnormal [Unknown]
